FAERS Safety Report 9338883 (Version 2)
Quarter: 2013Q4

REPORT INFORMATION
  Report Type: Report from Study
  Country: FR (occurrence: FR)
  Receive Date: 20130610
  Receipt Date: 20131210
  Transmission Date: 20140711
  Serious: Yes (Other)
  Sender: FDA-Public Use
  Company Number: PHHY2013FR057502

PATIENT
  Sex: 0

DRUGS (1)
  1. ACZ885 [Suspect]

REACTIONS (3)
  - Visual acuity reduced [Unknown]
  - Dyspnoea [Unknown]
  - Bronchial disorder [Not Recovered/Not Resolved]
